FAERS Safety Report 7362517-X (Version None)
Quarter: 2011Q1

REPORT INFORMATION
  Report Type: 
  Country: None (occurrence: None)
  Receive Date: 20110318
  Receipt Date: 20110309
  Transmission Date: 20110831
  Serious: Yes (Other)
  Sender: FDA-Public Use
  Company Number: US-ASTRAZENECA-2011SE13580

PATIENT
  Age: 69 Year
  Sex: Female

DRUGS (1)
  1. CRESTOR [Suspect]
     Route: 048

REACTIONS (5)
  - EXOSTOSIS [None]
  - HYPOAESTHESIA [None]
  - RENAL FAILURE [None]
  - THYROID DISORDER [None]
  - CARDIAC ASSISTANCE DEVICE USER [None]
